FAERS Safety Report 9368226 (Version 1)
Quarter: 2013Q2

REPORT INFORMATION
  Report Type: Spontaneous
  Country: US (occurrence: US)
  Receive Date: 20130625
  Receipt Date: 20130625
  Transmission Date: 20140414
  Serious: No
  Sender: FDA-Public Use
  Company Number: US-ASTELLAS-2013US003928

PATIENT
  Age: 83 Year
  Sex: Female

DRUGS (3)
  1. VESICARE [Suspect]
     Indication: PRODUCT USED FOR UNKNOWN INDICATION
     Dosage: 5 MG, UNKNOWN/D
     Route: 048
     Dates: start: 2011
  2. FOSAMAX [Suspect]
     Indication: BONE DENSITY ABNORMAL
     Dosage: 70 MG, WEEKLY
     Route: 065
     Dates: end: 201304
  3. TRICOR                             /00499301/ [Concomitant]
     Indication: PRODUCT USED FOR UNKNOWN INDICATION
     Dosage: UNK
     Route: 065

REACTIONS (2)
  - Local swelling [Recovering/Resolving]
  - Muscular weakness [Recovering/Resolving]
